FAERS Safety Report 6936107-4 (Version None)
Quarter: 2010Q3

REPORT INFORMATION
  Report Type: 
  Country: None (occurrence: None)
  Receive Date: 20100819
  Receipt Date: 20100819
  Transmission Date: 20110219
  Serious: Yes (Hospitalization, Other)
  Sender: FDA-Public Use
  Company Number: None

PATIENT
  Age: 68 Year
  Sex: Male
  Weight: 111 kg

DRUGS (2)
  1. RELISTOR [Suspect]
     Indication: ABDOMINAL DISTENSION
     Dosage: 12 MG EVERY OTHER DAY SQ
     Route: 058
     Dates: start: 20100803, end: 20100803
  2. RELISTOR [Suspect]
     Indication: CONSTIPATION
     Dosage: 12 MG EVERY OTHER DAY SQ
     Route: 058
     Dates: start: 20100803, end: 20100803

REACTIONS (4)
  - ACUTE ABDOMEN [None]
  - HYPERTENSION [None]
  - INTESTINAL ISCHAEMIA [None]
  - RENAL FAILURE ACUTE [None]
